FAERS Safety Report 14493138 (Version 1)
Quarter: 2018Q1

REPORT INFORMATION
  Report Type: Spontaneous
  Country: US (occurrence: US)
  Receive Date: 20180205
  Receipt Date: 20180205
  Transmission Date: 20180509
  Serious: Yes (Hospitalization)
  Sender: FDA-Public Use
  Company Number: None

PATIENT
  Age: 71 Year
  Sex: Male

DRUGS (9)
  1. ASPIRIN. [Concomitant]
     Active Substance: ASPIRIN
  2. FOLIC ACID. [Concomitant]
     Active Substance: FOLIC ACID
  3. LOSARTAN. [Concomitant]
     Active Substance: LOSARTAN
  4. HUMIRA [Suspect]
     Active Substance: ADALIMUMAB
     Indication: PSORIATIC ARTHROPATHY
     Dosage: ?          OTHER FREQUENCY:EVERY 2 WEEKS;?
     Route: 058
     Dates: start: 20131017
  5. METHOTREXATE. [Suspect]
     Active Substance: METHOTREXATE
     Indication: PRODUCT USED FOR UNKNOWN INDICATION
     Dosage: ?          OTHER FREQUENCY:UNK;?
  6. CENTRUM [Concomitant]
     Active Substance: VITAMINS
  7. LEVOTHROXINE [Concomitant]
     Active Substance: LEVOTHYROXINE
  8. MAGNESIUM [Concomitant]
     Active Substance: MAGNESIUM
  9. SIMVASTATIN. [Concomitant]
     Active Substance: SIMVASTATIN

REACTIONS (2)
  - Therapy cessation [None]
  - Psoriasis [None]

NARRATIVE: CASE EVENT DATE: 20171204
